FAERS Safety Report 24391793 (Version 2)
Quarter: 2024Q4

REPORT INFORMATION
  Report Type: Spontaneous
  Country: US (occurrence: US)
  Receive Date: 20241003
  Receipt Date: 20241119
  Transmission Date: 20250114
  Serious: No
  Sender: CATALYST PHARMA
  Company Number: US-CATALYST PHARMACEUTICALS-US-CATA-24-00377

PATIENT
  Age: 4 Year
  Sex: Male
  Weight: 21.769 kg

DRUGS (2)
  1. AGAMREE [Suspect]
     Active Substance: VAMOROLONE
     Indication: Duchenne muscular dystrophy
     Dosage: 3 ML ONCE DAILY
     Route: 048
     Dates: start: 20240316, end: 20240926
  2. AGAMREE [Suspect]
     Active Substance: VAMOROLONE
     Dosage: 1.8 ML DAILY
     Route: 048
     Dates: start: 20240927

REACTIONS (2)
  - Weight increased [Not Recovered/Not Resolved]
  - Diarrhoea [Not Recovered/Not Resolved]

NARRATIVE: CASE EVENT DATE: 20240316
